FAERS Safety Report 5811465-2 (Version None)
Quarter: 2008Q3

REPORT INFORMATION
  Report Type: 
  Country: None (occurrence: None)
  Receive Date: 20080714
  Receipt Date: 20080714
  Transmission Date: 20090109
  Serious: No
  Sender: FDA-Public Use
  Company Number: None

PATIENT
  Age: 42 Year
  Sex: Female
  Weight: 100.2449 kg

DRUGS (1)
  1. DAYPRO [Suspect]
     Dosage: 600MG ONE BID PO, NOT STARTED
     Route: 048

REACTIONS (2)
  - DRUG EFFECT INCREASED [None]
  - SELF-MEDICATION [None]
